FAERS Safety Report 7637143-5 (Version None)
Quarter: 2011Q3

REPORT INFORMATION
  Report Type: 
  Country: None (occurrence: None)
  Receive Date: 20110726
  Receipt Date: 20110718
  Transmission Date: 20111222
  Serious: Yes (Death, Hospitalization)
  Sender: FDA-Public Use
  Company Number: US-PURDUE-USA-2011-0071450

PATIENT
  Sex: Male

DRUGS (2)
  1. CHEMOTHERAPY [Concomitant]
     Indication: PANCREATIC CARCINOMA
  2. OXYCONTIN [Suspect]
     Indication: PRODUCT USED FOR UNKNOWN INDICATION
     Dosage: 15 MG, SEE TEXT
     Route: 048
     Dates: start: 20110620, end: 20110628

REACTIONS (5)
  - HOSPITALISATION [None]
  - DECREASED APPETITE [None]
  - DEHYDRATION [None]
  - ABDOMINAL PAIN UPPER [None]
  - DEATH [None]
